FAERS Safety Report 18173999 (Version 1)
Quarter: 2020Q3

REPORT INFORMATION
  Report Type: Spontaneous
  Country: US (occurrence: US)
  Receive Date: 20200819
  Receipt Date: 20200819
  Transmission Date: 20201103
  Serious: Yes (Hospitalization, Other)
  Sender: FDA-Public Use
  Company Number: US-BRISTOL-MYERS SQUIBB COMPANY-BMS-2020-066329

PATIENT
  Age: 7 Decade
  Sex: Female

DRUGS (3)
  1. NIVOLUMAB [Suspect]
     Active Substance: NIVOLUMAB
     Indication: MALIGNANT MELANOMA
     Route: 065
  2. IPILIMUMAB [Suspect]
     Active Substance: IPILIMUMAB
     Indication: MALIGNANT MELANOMA
     Route: 065
  3. OMEPRAZOLE. [Suspect]
     Active Substance: OMEPRAZOLE
     Indication: MALIGNANT MELANOMA
     Route: 065

REACTIONS (5)
  - Vasculitis necrotising [Unknown]
  - Dermatitis [Unknown]
  - Acute kidney injury [Recovered/Resolved]
  - Thyroiditis [Unknown]
  - Adrenal insufficiency [Unknown]
